FAERS Safety Report 12954313 (Version 3)
Quarter: 2017Q1

REPORT INFORMATION
  Report Type: Spontaneous
  Country: JP (occurrence: JP)
  Receive Date: 20161118
  Receipt Date: 20170111
  Transmission Date: 20170428
  Serious: Yes (Disabling)
  Sender: FDA-Public Use
  Company Number: JP-ACTELION-A-CH2016-145378

PATIENT
  Age: 67 Year
  Sex: Female

DRUGS (10)
  1. BAKTAR [Concomitant]
     Active Substance: SULFAMETHOXAZOLE\TRIMETHOPRIM
  2. MEDICON [Concomitant]
     Active Substance: DEXTROMETHORPHAN HYDROBROMIDE
  3. CARBOCISTEINE [Concomitant]
     Active Substance: CARBOCYSTEINE
  4. ADCIRCA [Concomitant]
     Active Substance: TADALAFIL
     Indication: PRODUCT USED FOR UNKNOWN INDICATION
  5. CRESTOR [Concomitant]
     Active Substance: ROSUVASTATIN CALCIUM
  6. FOSAMAC [Concomitant]
     Active Substance: ALENDRONATE SODIUM
  7. OPSUMIT [Suspect]
     Active Substance: MACITENTAN
     Indication: PULMONARY ARTERIAL HYPERTENSION
     Dosage: 10 MG, QD
     Route: 048
     Dates: start: 20151210, end: 20161027
  8. URSO [Concomitant]
     Active Substance: URSODIOL
  9. PREDONINE [Concomitant]
     Active Substance: PREDNISOLONE
  10. GASTER [Concomitant]
     Active Substance: FAMOTIDINE

REACTIONS (2)
  - Middle ear effusion [Recovered/Resolved]
  - Deafness [Recovered/Resolved]

NARRATIVE: CASE EVENT DATE: 20161027
